FAERS Safety Report 10649010 (Version 2)
Quarter: 2014Q4

REPORT INFORMATION
  Report Type: Spontaneous
  Country: US (occurrence: US)
  Receive Date: 20141212
  Receipt Date: 20141212
  Transmission Date: 20150529
  Serious: Yes (Other)
  Sender: FDA-Public Use
  Company Number: US-MALLINCKRODT-T201404084

PATIENT
  Age: 74 Year
  Sex: Male
  Weight: 77 kg

DRUGS (2)
  1. H.P. ACTHAR [Suspect]
     Active Substance: CORTICOTROPIN
     Dosage: 80 U, BIWEEKLY
     Route: 058
  2. H.P. ACTHAR [Suspect]
     Active Substance: CORTICOTROPIN
     Indication: GLOMERULONEPHRITIS MEMBRANOUS
     Dosage: 40 U, BIWEEKLY
     Route: 058
     Dates: start: 20141021

REACTIONS (10)
  - Blood glucose increased [Not Recovered/Not Resolved]
  - Face oedema [Unknown]
  - Peripheral swelling [Not Recovered/Not Resolved]
  - Bowel movement irregularity [Unknown]
  - Renal failure [Not Recovered/Not Resolved]
  - Dialysis [None]
  - Irritability [Not Recovered/Not Resolved]
  - Fatigue [Unknown]
  - Localised oedema [Unknown]
  - Insomnia [Not Recovered/Not Resolved]

NARRATIVE: CASE EVENT DATE: 2014
